FAERS Safety Report 7083864-5 (Version None)
Quarter: 2010Q4

REPORT INFORMATION
  Report Type: 
  Country: None (occurrence: None)
  Receive Date: 20101104
  Receipt Date: 20101015
  Transmission Date: 20110411
  Serious: Yes (Other)
  Sender: FDA-Public Use
  Company Number: US-BRISTOL-MYERS SQUIBB COMPANY-15361686

PATIENT
  Age: 40 Year
  Sex: Female

DRUGS (5)
  1. WESTCORT [Suspect]
     Route: 061
  2. TRIAMCINOLONE [Suspect]
     Dates: start: 20060915, end: 20071017
  3. LEVAQUIN [Suspect]
     Indication: INFECTION PROPHYLAXIS
     Dosage: MG
     Route: 048
     Dates: start: 20050601, end: 20090101
  4. NASONEX [Suspect]
     Dosage: SUSPENSION
     Route: 045
  5. LEVOFLOXACIN [Suspect]
     Indication: INFECTION PROPHYLAXIS
     Dosage: 500MG:04FEB05-03JAN08 500MG:28OCT2008 750MG
     Dates: start: 20050204

REACTIONS (4)
  - EPICONDYLITIS [None]
  - NEUROPATHY PERIPHERAL [None]
  - TENDON DISORDER [None]
  - TENOSYNOVITIS STENOSANS [None]
